FAERS Safety Report 8840234 (Version 1)
Quarter: 2012Q4

REPORT INFORMATION
  Report Type: 
  Country: US (occurrence: US)
  Receive Date: 20121015
  Receipt Date: 20121015
  Transmission Date: 20130627
  Serious: Yes (Hospitalization)
  Sender: FDA-Public Use
  Company Number: US-GLAXOSMITHKLINE-A0775975A

PATIENT
  Age: 59 Year
  Sex: Female
  Weight: 138.6 kg

DRUGS (1)
  1. AVANDIA [Suspect]
     Indication: TYPE 2 DIABETES MELLITUS
     Dosage: 8MG Twice per day
     Route: 048
     Dates: start: 200707, end: 200801

REACTIONS (5)
  - Abdominal pain upper [Not Recovered/Not Resolved]
  - Aphagia [Unknown]
  - Insomnia [Unknown]
  - Gastrointestinal disorder [Unknown]
  - Heart rate increased [Unknown]
